FAERS Safety Report 6248573-0 (Version None)
Quarter: 2009Q2

REPORT INFORMATION
  Report Type: 
  Country: None (occurrence: None)
  Receive Date: 20090624
  Receipt Date: 20090610
  Transmission Date: 20091009
  Serious: Yes (Other)
  Sender: FDA-Public Use
  Company Number: US-1169959

PATIENT
  Age: 77 Year
  Sex: Female
  Weight: 102.9665 kg

DRUGS (8)
  1. CARBACHOL [Suspect]
     Indication: POSTOPERATIVE CARE
     Dosage: 1 GTT IMMEDIATELY POST-OP OPHTHALMIC
     Route: 047
     Dates: start: 20090506, end: 20090506
  2. VERSED [Concomitant]
  3. LIDOCAINE HYDROCHLORIDE [Concomitant]
  4. BSS [Concomitant]
  5. FENTANYL [Concomitant]
  6. XYLOCAINE [Concomitant]
  7. EPINEPHRINE [Concomitant]
  8. DUOVISC [Suspect]

REACTIONS (7)
  - BLOOD PRESSURE DECREASED [None]
  - EPIGASTRIC DISCOMFORT [None]
  - EYE ROLLING [None]
  - HEART RATE DECREASED [None]
  - HYPERHIDROSIS [None]
  - NAUSEA [None]
  - SYNCOPE [None]
